FAERS Safety Report 9083337 (Version 1)
Quarter: 2013Q1

REPORT INFORMATION
  Report Type: Report from Study
  Country: US (occurrence: US)
  Receive Date: 20130130
  Receipt Date: 20130130
  Transmission Date: 20140127
  Serious: No
  Sender: FDA-Public Use
  Company Number: US-ABBOTT-12P-163-0917583-00

PATIENT
  Sex: Female

DRUGS (5)
  1. HUMIRA 40 MG/0.8 ML PEN [Suspect]
     Indication: PSORIASIS
     Dosage: INJECT UNDER SKIN
     Dates: start: 20120127
  2. LISINOPRIL [Concomitant]
     Indication: HYPERTENSION
     Route: 048
  3. GLIPIZIDE [Concomitant]
     Indication: DIABETES MELLITUS
     Route: 048
  4. NEBULIZER [Concomitant]
     Indication: ASTHMA
  5. OVER THE COUNTER PAIN MEDICINE [Concomitant]
     Indication: PRODUCT USED FOR UNKNOWN INDICATION

REACTIONS (5)
  - Contusion [Unknown]
  - Local swelling [Not Recovered/Not Resolved]
  - Injection site nodule [Unknown]
  - Pruritus [Unknown]
  - Injection site swelling [Unknown]
